FAERS Safety Report 6937604-8 (Version None)
Quarter: 2010Q3

REPORT INFORMATION
  Report Type: 
  Country: None (occurrence: None)
  Receive Date: 20100823
  Receipt Date: 20100823
  Transmission Date: 20110219
  Serious: Yes (Life-Threatening, Hospitalization, Other)
  Sender: FDA-Public Use
  Company Number: None

PATIENT
  Age: 60 Year
  Sex: Female
  Weight: 80.7403 kg

DRUGS (7)
  1. DORIPENEM 500MG ORTHO-MCNEIL [Suspect]
     Indication: PERITONITIS BACTERIAL
     Dates: start: 20100819, end: 20100821
  2. ACETAMIN9OPEN [Concomitant]
  3. AZITHROMYCIN [Concomitant]
  4. CEFTRIAXONE [Concomitant]
  5. IBUPROFEN [Concomitant]
  6. POTASSIUM CHLORIDE [Concomitant]
  7. SODIUM CHLORIDE [Concomitant]

REACTIONS (1)
  - CONVULSION [None]
